FAERS Safety Report 4448686-X (Version None)
Quarter: 2004Q3

REPORT INFORMATION
  Report Type: 
  Country: None (occurrence: None)
  Receive Date: 20040909
  Receipt Date: 20040909
  Transmission Date: 20050211
  Serious: Yes (Hospitalization)
  Sender: FDA-Public Use
  Company Number: None

PATIENT
  Age: 78 Year
  Sex: Male
  Weight: 59.8748 kg

DRUGS (8)
  1. ROSIGLITAZONE 8 MG [Suspect]
     Indication: DIABETES MELLITUS
     Dosage: 8 MG PO DAILY
     Route: 048
     Dates: start: 20031202, end: 20040416
  2. ASPIRIN [Concomitant]
  3. DIGOXIN [Concomitant]
  4. FOSINOPRIL SODIUM [Concomitant]
  5. REGULAR INSULIN [Concomitant]
  6. DILTIAZEM [Concomitant]
  7. SIMVASTATIN [Concomitant]
  8. THEOPHYLLINE [Concomitant]

REACTIONS (6)
  - BRADYCARDIA [None]
  - CARDIAC FAILURE CONGESTIVE [None]
  - CHRONIC OBSTRUCTIVE AIRWAYS DISEASE EXACERBATED [None]
  - COUGH [None]
  - DYSPNOEA [None]
  - HYPERKALAEMIA [None]
